FAERS Safety Report 4352282-2 (Version None)
Quarter: 2004Q2

REPORT INFORMATION
  Report Type: 
  Country: None (occurrence: None)
  Receive Date: 20040427
  Receipt Date: 20030326
  Transmission Date: 20050107
  Serious: No
  Sender: FDA-Public Use
  Company Number: 2003-104082-NL

PATIENT
  Age: 57 Year
  Sex: Female

DRUGS (5)
  1. ROCURONIUM [Suspect]
     Indication: HYPOTONIA
     Dosage: DF DAILY
     Dates: start: 20021009
  2. ROCURONIUM [Suspect]
     Indication: INTUBATION
     Dosage: DF DAILY
     Dates: start: 20021009
  3. PROPOFOL [Suspect]
     Indication: INTUBATION
     Dates: start: 20021009
  4. SEVOFLURANE [Concomitant]
  5. VERSED [Concomitant]

REACTIONS (1)
  - ANAPHYLACTIC SHOCK [None]
